FAERS Safety Report 5046816-2 (Version None)
Quarter: 2006Q3

REPORT INFORMATION
  Report Type: 
  Country: None (occurrence: None)
  Receive Date: 20060705
  Receipt Date: 20060705
  Transmission Date: 20061208
  Serious: Yes (Life-Threatening, Hospitalization)
  Sender: FDA-Public Use
  Company Number: None

PATIENT
  Age: 61 Year
  Sex: Male
  Weight: 69.1 kg

DRUGS (2)
  1. ETOPOSIDE [Suspect]
     Indication: NON-HODGKIN'S LYMPHOMA
     Dosage: 172 MG IV
     Route: 042
     Dates: start: 20060213, end: 20060215
  2. CISPLATIN [Suspect]
     Indication: NON-HODGKIN'S LYMPHOMA
     Dosage: 45 MG IV
     Route: 042
     Dates: start: 20060213, end: 20060215

REACTIONS (1)
  - ACUTE MYOCARDIAL INFARCTION [None]
